FAERS Safety Report 16098360 (Version 1)
Quarter: 2019Q1

REPORT INFORMATION
  Report Type: Spontaneous
  Country: US (occurrence: US)
  Receive Date: 20190321
  Receipt Date: 20190321
  Transmission Date: 20190418
  Serious: No
  Sender: FDA-Public Use
  Company Number: US-TEVA-2019-US-1018551

PATIENT
  Sex: Male
  Weight: 95.34 kg

DRUGS (1)
  1. OMEPRAZOLE EC CAPSULES [Suspect]
     Active Substance: OMEPRAZOLE
     Indication: GASTROOESOPHAGEAL REFLUX DISEASE
     Dosage: ONGOING, ONE IN MORNING AND ONE AT NIGHT
     Route: 048
     Dates: start: 2000

REACTIONS (2)
  - Drug ineffective [None]
  - Gastrooesophageal reflux disease [Not Recovered/Not Resolved]
